FAERS Safety Report 18043967 (Version 1)
Quarter: 2020Q3

REPORT INFORMATION
  Report Type: Spontaneous
  Country: US (occurrence: US)
  Receive Date: 20200718
  Receipt Date: 20200718
  Transmission Date: 20201103
  Serious: Yes (Hospitalization)
  Sender: FDA-Public Use
  Company Number: None

PATIENT
  Age: 64 Year
  Sex: Female
  Weight: 73.4 kg

DRUGS (1)
  1. ASPIRIN. [Suspect]
     Active Substance: ASPIRIN
     Dates: end: 20191020

REACTIONS (7)
  - Dyspnoea [None]
  - Asthenia [None]
  - Hypoxia [None]
  - Dizziness [None]
  - Chest discomfort [None]
  - Palpitations [None]
  - Supraventricular tachycardia [None]

NARRATIVE: CASE EVENT DATE: 20191020
